FAERS Safety Report 6022539-8 (Version None)
Quarter: 2008Q4

REPORT INFORMATION
  Report Type: 
  Country: None (occurrence: None)
  Receive Date: 20081223
  Receipt Date: 20081208
  Transmission Date: 20090506
  Serious: Yes (Hospitalization)
  Sender: FDA-Public Use
  Company Number: 107902

PATIENT
  Sex: Female

DRUGS (6)
  1. DAIVONEX (CALCIPOTRIOL) [Suspect]
     Indication: PSORIASIS
     Dosage: TOPICAL
     Route: 061
  2. MELOXICAM [Concomitant]
  3. METHOTREXATE [Concomitant]
  4. CLOBETASOL (CLOBETASOL) [Concomitant]
  5. FLUOXETINE [Concomitant]
  6. FOLIC ACID [Concomitant]

REACTIONS (4)
  - CELLULITIS [None]
  - CONDITION AGGRAVATED [None]
  - ECONOMIC PROBLEM [None]
  - PSORIASIS [None]
